FAERS Safety Report 18296233 (Version 1)
Quarter: 2020Q3

REPORT INFORMATION
  Report Type: Spontaneous
  Country: US (occurrence: US)
  Receive Date: 20200922
  Receipt Date: 20200922
  Transmission Date: 20201103
  Serious: Yes (Other)
  Sender: FDA-Public Use
  Company Number: US-SUN PHARMACEUTICAL INDUSTRIES LTD-2020R1-261256

PATIENT
  Age: 20 Year
  Sex: Female

DRUGS (2)
  1. SULPHAMETHOXAZOLE/TRIMETHOPRIM [Suspect]
     Active Substance: SULFAMETHOXAZOLE\TRIMETHOPRIM
     Indication: STAPHYLOCOCCAL INFECTION
     Dosage: UNK, BID (SULFAMETHOXAZOLE (800 MG) AND TRIMETHOPRIM (160 MG)
     Route: 065
  2. SULPHAMETHOXAZOLE/TRIMETHOPRIM [Suspect]
     Active Substance: SULFAMETHOXAZOLE\TRIMETHOPRIM
     Indication: ESCHERICHIA INFECTION

REACTIONS (5)
  - Macular oedema [Recovered/Resolved]
  - Aneurysm [Recovered/Resolved]
  - Retinal haemorrhage [Recovered/Resolved]
  - Visual field defect [Recovered/Resolved]
  - Myopia [Recovered/Resolved]
